FAERS Safety Report 9178346 (Version 1)
Quarter: 2012Q4

REPORT INFORMATION
  Report Type: 
  Country: GB (occurrence: GB)
  Receive Date: 20121029
  Receipt Date: 20121029
  Transmission Date: 20130627
  Serious: Yes (Hospitalization)
  Sender: FDA-Public Use
  Company Number: GB-PFIZER INC-2012264961

PATIENT
  Sex: Female
  Weight: 69.8 kg

DRUGS (7)
  1. GENOTROPIN [Suspect]
     Dosage: 0.4 mg, 7/wk
     Route: 058
     Dates: start: 20051116
  2. THYROXINE [Concomitant]
     Indication: TSH DECREASED
     Dosage: UNK
     Dates: start: 200503
  3. THYROXINE [Concomitant]
     Indication: PRIMARY HYPOTHYROIDISM
  4. VENLAFAXINE [Concomitant]
     Indication: NEUROTIC DEPRESSION
     Dosage: UNK
     Dates: start: 200503
  5. DESMOSPRAY [Concomitant]
     Indication: DIABETES MELLITUS
     Dosage: UNK
     Dates: start: 200503
  6. DESMOSPRAY [Concomitant]
     Indication: IDDM
  7. METYRAPONE [Concomitant]
     Indication: CUSHING^S DISEASE
     Dosage: UNK
     Dates: start: 20070508

REACTIONS (1)
  - Blood cortisol abnormal [Unknown]
